FAERS Safety Report 6565695-5 (Version None)
Quarter: 2010Q1

REPORT INFORMATION
  Report Type: 
  Country: None (occurrence: None)
  Receive Date: 20100126
  Receipt Date: 20100104
  Transmission Date: 20100710
  Serious: Yes (Death)
  Sender: FDA-Public Use
  Company Number: 2010VX000111

PATIENT
  Age: 55 Year
  Sex: Female

DRUGS (8)
  1. ACETAMINOPHEN AND CODEINE PHOSPHATE [Suspect]
     Indication: DRUG USE FOR UNKNOWN INDICATION
  2. MARIJUANA [Suspect]
     Indication: DRUG USE FOR UNKNOWN INDICATION
  3. CITALOPRAM HYDROBROMIDE [Suspect]
     Indication: DRUG USE FOR UNKNOWN INDICATION
  4. TOPIRAMATE [Suspect]
     Indication: DRUG USE FOR UNKNOWN INDICATION
  5. PREGABALIN [Suspect]
     Indication: DRUG USE FOR UNKNOWN INDICATION
  6. NAPROXEN [Suspect]
     Indication: DRUG USE FOR UNKNOWN INDICATION
  7. ANTICONVULSANT, PYRROLIDINONE DERIVITIVE [Suspect]
     Indication: DRUG USE FOR UNKNOWN INDICATION
  8. OPIOID [Suspect]
     Indication: DRUG USE FOR UNKNOWN INDICATION

REACTIONS (1)
  - COMPLETED SUICIDE [None]
